FAERS Safety Report 7976226-7 (Version None)
Quarter: 2011Q4

REPORT INFORMATION
  Report Type: 
  Country: None (occurrence: None)
  Receive Date: 20111213
  Receipt Date: 20111014
  Transmission Date: 20120403
  Serious: Yes (Other)
  Sender: FDA-Public Use
  Company Number: US-AMGEN-USASP2011052286

PATIENT
  Age: 56 Year
  Sex: Male

DRUGS (2)
  1. ENBREL [Suspect]
     Indication: RHEUMATOID ARTHRITIS
     Dosage: 50 MG, UNK
     Dates: start: 20070101, end: 20110930
  2. ENBREL [Suspect]
     Dosage: 50 MG, QWK
     Dates: start: 20081101

REACTIONS (7)
  - PNEUMONIA BACTERIAL [None]
  - ARTHRALGIA [None]
  - RHEUMATOID ARTHRITIS [None]
  - ERYTHEMA [None]
  - JOINT STIFFNESS [None]
  - JOINT SWELLING [None]
  - INFLUENZA [None]
